FAERS Safety Report 6018564-3 (Version None)
Quarter: 2008Q4

REPORT INFORMATION
  Report Type: 
  Country: None (occurrence: None)
  Receive Date: 20081223
  Receipt Date: 20081215
  Transmission Date: 20090506
  Serious: Yes (Other)
  Sender: FDA-Public Use
  Company Number: DE-ROXANE LABORATORIES, INC.-2008-RO-00424RO

PATIENT
  Age: 54 Year
  Sex: Female

DRUGS (1)
  1. TAMOXIFEN CITRATE [Suspect]
     Indication: BREAST CANCER
     Dosage: 20MG
     Dates: start: 20070130

REACTIONS (9)
  - ARTHRALGIA [None]
  - BONE PAIN [None]
  - ENDOMETRIOSIS [None]
  - FLUSHING [None]
  - NAUSEA [None]
  - OVARIAN ADENOMA [None]
  - OVARIAN CYST [None]
  - SALPINGITIS [None]
  - UTERINE LEIOMYOMA [None]
